FAERS Safety Report 7426388-5 (Version None)
Quarter: 2011Q2

REPORT INFORMATION
  Report Type: 
  Country: None (occurrence: None)
  Receive Date: 20110420
  Receipt Date: 20110414
  Transmission Date: 20111010
  Serious: Yes (Hospitalization)
  Sender: FDA-Public Use
  Company Number: FR-B.I. PHARMACEUTICALS,INC./RIDGEFIELD-2011-FF-00347FF

PATIENT
  Sex: Male

DRUGS (13)
  1. MICARDIS [Suspect]
     Dosage: 40 MG
     Route: 048
     Dates: end: 20101029
  2. FORLAX [Suspect]
     Dosage: 20 G
     Route: 048
  3. LEVOTHYROX [Suspect]
     Dosage: 125 MCG
     Route: 048
  4. MIRTAZAPINE [Suspect]
     Dosage: 15 MG
     Route: 048
     Dates: end: 20101001
  5. PRAVASTATIN SODIUM [Suspect]
     Dosage: 40 MG
     Route: 048
  6. BROMAZEPAM [Suspect]
     Dosage: 1 ANZ
     Route: 048
  7. OMEPRAZOLE [Suspect]
     Dosage: 20 MG
     Route: 048
  8. SYMBICORT [Suspect]
     Dosage: 400/12 MCG/DOSE
     Route: 055
  9. KARDEGIC [Suspect]
  10. AMIODARONE [Suspect]
     Route: 048
  11. FUROSEMIDE [Suspect]
     Dosage: 20 MG
     Route: 048
  12. PLAVIX [Suspect]
     Dosage: 75 MG
     Route: 048
  13. PERMIXON [Suspect]
     Dosage: 320 MG
     Route: 048

REACTIONS (2)
  - HYPERHIDROSIS [None]
  - NIGHT SWEATS [None]
